FAERS Safety Report 12451178 (Version 1)
Quarter: 2016Q2

REPORT INFORMATION
  Report Type: Spontaneous
  Country: US (occurrence: None)
  Receive Date: 20160608
  Receipt Date: 20160608
  Transmission Date: 20160815
  Serious: Yes (Other)
  Sender: FDA-Public Use
  Company Number: None

PATIENT
  Age: 36 Year
  Sex: Male
  Weight: 86.18 kg

DRUGS (12)
  1. LISINOPRIL-HCTZ [Concomitant]
     Active Substance: HYDROCHLOROTHIAZIDE\LISINOPRIL
  2. AMLODIPINE [Concomitant]
     Active Substance: AMLODIPINE BESYLATE
  3. PHOSPHATIDYLSERINE COMPLEX [Concomitant]
  4. TRAZODONE [Concomitant]
     Active Substance: TRAZODONE HYDROCHLORIDE
  5. VITAMIN B1 [Concomitant]
     Active Substance: THIAMINE HYDROCHLORIDE
  6. BUSPAR [Concomitant]
     Active Substance: BUSPIRONE HYDROCHLORIDE
  7. TESTOSTERONE THERAPY [Concomitant]
  8. S-ADENOSYL-L-METHIONINE [Concomitant]
     Active Substance: ADEMETIONINE
  9. PQQ [Concomitant]
  10. VITAMIN D [Concomitant]
     Active Substance: CHOLECALCIFEROL
  11. LISINOPRIL-HCTZ [Concomitant]
     Active Substance: HYDROCHLOROTHIAZIDE\LISINOPRIL
  12. HARVONI [Suspect]
     Active Substance: LEDIPASVIR\SOFOSBUVIR
     Indication: HEPATITIS C
     Dosage: 90MG/400MG 56 PILLS ONCE A DAY FOR 56 DAYS ORALLY
     Route: 048
     Dates: start: 20150427, end: 20150626

REACTIONS (13)
  - Social anxiety disorder [None]
  - Headache [None]
  - Hypertension [None]
  - Erectile dysfunction [None]
  - Depression [None]
  - Confusional state [None]
  - Anxiety [None]
  - Blood testosterone decreased [None]
  - Palpitations [None]
  - Cough [None]
  - Cardiac flutter [None]
  - Wheezing [None]
  - Throat irritation [None]

NARRATIVE: CASE EVENT DATE: 20150427
